FAERS Safety Report 24414459 (Version 2)
Quarter: 2024Q4

REPORT INFORMATION
  Report Type: Report from Study
  Country: US (occurrence: US)
  Receive Date: 20241009
  Receipt Date: 20241028
  Transmission Date: 20250115
  Serious: No
  Sender: ACADIA PHARMACEUTICALS
  Company Number: US-ACADIA PHARMACEUTICALS INC.-ACA-2024-PIM-005976

PATIENT
  Sex: Male

DRUGS (12)
  1. NUPLAZID [Suspect]
     Active Substance: PIMAVANSERIN TARTRATE
     Indication: Parkinson^s disease psychosis
     Dosage: 34 MILLIGRAM, QD
     Route: 048
     Dates: start: 202406
  2. NUPLAZID [Suspect]
     Active Substance: PIMAVANSERIN TARTRATE
     Dosage: 34 MILLIGRAM, QD
     Route: 048
  3. CARBIDOPA LEVODOPA [Concomitant]
     Active Substance: CARBIDOPA\LEVODOPA
     Dosage: 25-100 MG (2.5 MG TAB FOUR TIMES DAILY EACH DOSE 4 HOURS APART)
  4. GABAPENTIN [Concomitant]
     Active Substance: GABAPENTIN
     Dosage: 300 MILLIGRAM (1 CAPSULE BY MOUTH IN THE MORNING, 1 CAPSULE BY MOUTH AT NOON AND 1 CAPSULE BY MOUTH
     Route: 048
  5. NOVOLIN 70/30 [Concomitant]
     Active Substance: INSULIN HUMAN
     Dosage: (70-30) 100 UNIT/ML/ INJECT 40 UNITS UNDER 1 SKIN TIME EACH DAY IN THE MORNING
  6. METFORMIN [Concomitant]
     Active Substance: METFORMIN HYDROCHLORIDE
     Dosage: 1000 MILLIGRAM, BID (1 TABLET BY MOUTH IN THE MORNING AND 1 TABLET IN THE EVENING. TAKE WITH THE MEA
     Route: 048
  7. METOPROLOL TARTRATE [Concomitant]
     Active Substance: METOPROLOL TARTRATE
     Dosage: 25 MG (TAKE 0.5 MG TABLETS (12.5 MG TOTAL) BY MOUTH IN THE MORNING AND 0.5 TABLETS (12.5 TOTAL) BEFO
     Route: 048
  8. OXYCODONE HYDROCHLORIDE [Concomitant]
     Active Substance: OXYCODONE HYDROCHLORIDE
     Dosage: 10 MILLIGRAM (ER) TAKE 1 TABLET (10 MG) BY MOUTH AT NIGHT IF NEEDED FOR SEVERE PAIN. DO NOT CRUSH, C
     Route: 048
  9. RAMIPRIL [Concomitant]
     Active Substance: RAMIPRIL
     Dosage: 5 MILLIGRAM, QD (TAKE ONE CAPSULE ONE TIME DAILY)
     Route: 048
  10. ROPINIROLE HYDROCHLORIDE [Concomitant]
     Active Substance: ROPINIROLE HYDROCHLORIDE
     Dosage: 10 MILLIGRAM, (2 TAB THREE TIMES DAYS DAILY)
     Route: 048
  11. ROSUVASTATIN CALCIUM [Concomitant]
     Active Substance: ROSUVASTATIN CALCIUM
     Dosage: 10 MILLIGRAM, QD (TAKE 1 TABLET (10 MG TOTAL) BY MOUTH 1 TIME EACH DAY)
     Route: 048
  12. SODIUM CHLORIDE [Concomitant]
     Active Substance: SODIUM CHLORIDE
     Indication: Hyponatraemia
     Dosage: 1 GRAM (TAKE 1 TABLET (1 G TOTAL) BY MOUTH 2 TIMES A DAY IF NEEDED)
     Route: 048

REACTIONS (1)
  - Product use issue [Recovered/Resolved]
